FAERS Safety Report 5270796-8 (Version None)
Quarter: 2007Q1

REPORT INFORMATION
  Report Type: 
  Country: None (occurrence: None)
  Receive Date: 20070319
  Receipt Date: 20070319
  Transmission Date: 20070707
  Serious: Yes (Hospitalization)
  Sender: FDA-Public Use
  Company Number: None

PATIENT
  Sex: Female
  Weight: 78.0187 kg

DRUGS (1)
  1. LIPRAM [Suspect]
     Indication: PROPHYLAXIS
     Dosage: LIPRAM 4500   UP TO 24 CAPS DAIL   PO
     Route: 048
     Dates: start: 20060220, end: 20070316

REACTIONS (2)
  - ABDOMINAL PAIN [None]
  - PHARMACEUTICAL PRODUCT COMPLAINT [None]
